FAERS Safety Report 4933600-0 (Version None)
Quarter: 2006Q1

REPORT INFORMATION
  Report Type: 
  Country: None (occurrence: None)
  Receive Date: 20060306
  Receipt Date: 20060207
  Transmission Date: 20060701
  Serious: Yes (Hospitalization)
  Sender: FDA-Public Use
  Company Number: PHNU2006AU00844

PATIENT
  Age: 81 Year
  Sex: Female

DRUGS (1)
  1. TRANSIDERM-NITRO [Suspect]

REACTIONS (3)
  - DRUG DOSE OMISSION [None]
  - MEMORY IMPAIRMENT [None]
  - SPEECH DISORDER [None]
